FAERS Safety Report 24088617 (Version 2)
Quarter: 2024Q4

REPORT INFORMATION
  Report Type: Report from Study
  Country: CA (occurrence: CA)
  Receive Date: 20240715
  Receipt Date: 20241105
  Transmission Date: 20250114
  Serious: Yes (Other)
  Sender: TAKEDA
  Company Number: CA-TAKEDA-2024TUS070932

PATIENT
  Sex: Female

DRUGS (3)
  1. VEDOLIZUMAB [Suspect]
     Active Substance: VEDOLIZUMAB
     Indication: Crohn^s disease
     Dosage: 300 MILLIGRAM
     Route: 042
     Dates: start: 20210714
  2. VEDOLIZUMAB [Suspect]
     Active Substance: VEDOLIZUMAB
     Dosage: 300 MILLIGRAM, Q4WEEKS
     Route: 042
     Dates: start: 20240712
  3. IMURAN [Concomitant]
     Active Substance: AZATHIOPRINE
     Dosage: 75 MILLIGRAM
     Dates: start: 2012

REACTIONS (4)
  - Crohn^s disease [Unknown]
  - Intestinal stenosis [Unknown]
  - Haematochezia [Recovered/Resolved]
  - Anal skin tags [Unknown]
